FAERS Safety Report 10677616 (Version 2)
Quarter: 2015Q1

REPORT INFORMATION
  Report Type: Spontaneous
  Country: TW (occurrence: TW)
  Receive Date: 20141229
  Receipt Date: 20150106
  Transmission Date: 20150720
  Serious: No
  Sender: FDA-Public Use
  Company Number: TW-AMGEN-TWNSP2014100867

PATIENT
  Age: 49 Year
  Sex: Male

DRUGS (2)
  1. ENBREL [Suspect]
     Active Substance: ETANERCEPT
     Indication: ANKYLOSING SPONDYLITIS
     Dosage: 25 MG, TWICE WEEKLY
     Route: 058
     Dates: start: 20120104
  2. ENBREL [Suspect]
     Active Substance: ETANERCEPT
     Dosage: 25 MG, WEEKLY
     Route: 058

REACTIONS (1)
  - Myalgia [Not Recovered/Not Resolved]
